FAERS Safety Report 4408016-6 (Version None)
Quarter: 2004Q3

REPORT INFORMATION
  Report Type: 
  Country: None (occurrence: None)
  Receive Date: 20040721
  Receipt Date: 20040707
  Transmission Date: 20050211
  Serious: No
  Sender: FDA-Public Use
  Company Number: 2004AP03536

PATIENT
  Age: 46 Year
  Sex: Female
  Weight: 59 kg

DRUGS (13)
  1. XYLOCAINE [Suspect]
     Indication: LOCAL ANAESTHESIA
  2. DIAZEPAM [Concomitant]
  3. RANITIDINE HYDROCHLORIDE [Concomitant]
  4. CEFAZOLIN SODIUM [Concomitant]
  5. FENTANYL [Concomitant]
  6. THIAMYLAL SODIUM [Concomitant]
  7. OXYGEN [Concomitant]
  8. SEVOFLURANE [Concomitant]
  9. SUCCINYLCHOLINE CHLORIDE [Concomitant]
  10. MEPIVACAINE BROMIDE [Concomitant]
  11. VECURONIUM BROMIDE [Concomitant]
  12. ATROPINE SULFATE [Concomitant]
  13. VAGOSTIGMIN #1 [Concomitant]

REACTIONS (8)
  - BONE DISORDER [None]
  - CARDIOVASCULAR DISORDER [None]
  - DRUG HYPERSENSITIVITY [None]
  - EPIGLOTTIC OEDEMA [None]
  - LARYNGEAL OEDEMA [None]
  - PHARYNGEAL OEDEMA [None]
  - POST PROCEDURAL COMPLICATION [None]
  - RESPIRATION ABNORMAL [None]
